FAERS Safety Report 5947378-5 (Version None)
Quarter: 2008Q4

REPORT INFORMATION
  Report Type: 
  Country: None (occurrence: None)
  Receive Date: 20081110
  Receipt Date: 20081029
  Transmission Date: 20090506
  Serious: Yes (Other)
  Sender: FDA-Public Use
  Company Number: US-PFIZER INC-2008091548

PATIENT
  Sex: Female
  Weight: 59 kg

DRUGS (6)
  1. DILANTIN [Suspect]
     Indication: EPILEPSY
     Route: 048
  2. PREDNISONE TAB [Concomitant]
  3. VALSARTAN [Concomitant]
  4. WARFARIN SODIUM [Concomitant]
  5. XANAX [Concomitant]
  6. VICODIN [Concomitant]

REACTIONS (2)
  - ANTICONVULSANT DRUG LEVEL INCREASED [None]
  - AURA [None]
